FAERS Safety Report 4734092-7 (Version None)
Quarter: 2005Q3

REPORT INFORMATION
  Report Type: 
  Country: None (occurrence: None)
  Receive Date: 20050803
  Receipt Date: 20050803
  Transmission Date: 20060218
  Serious: Yes (Hospitalization)
  Sender: FDA-Public Use
  Company Number: None

PATIENT
  Age: 62 Year
  Sex: Male
  Weight: 87.1 kg

DRUGS (8)
  1. VINCRISTINE [Suspect]
     Indication: MANTLE CELL LYMPHOMA
     Dosage: 2MG IV
     Route: 042
     Dates: start: 20050714, end: 20050714
  2. DECADRON [Concomitant]
  3. MESNA [Concomitant]
  4. CYTOXAN [Concomitant]
  5. ADRIAMYCIN PFS [Concomitant]
  6. DILANTIN [Concomitant]
  7. PROTONIX [Concomitant]
  8. EFFEXOR [Concomitant]

REACTIONS (4)
  - COLD SWEAT [None]
  - DEPRESSED LEVEL OF CONSCIOUSNESS [None]
  - NAUSEA [None]
  - SYNCOPE [None]
